FAERS Safety Report 8431033-6 (Version None)
Quarter: 2012Q2

REPORT INFORMATION
  Report Type: 
  Country: None (occurrence: None)
  Receive Date: 20120612
  Receipt Date: 20120607
  Transmission Date: 20120825
  Serious: Yes (Hospitalization)
  Sender: FDA-Public Use
  Company Number: FR-ROCHE-1073669

PATIENT
  Sex: Female
  Weight: 62 kg

DRUGS (1)
  1. VISMODEGIB [Suspect]
     Indication: BASAL CELL CARCINOMA
     Dosage: LAST DOSE PRIOR TO SAE WAS ON 20/MAY/2012.
     Route: 048
     Dates: start: 20120507

REACTIONS (1)
  - PYELONEPHRITIS [None]
